FAERS Safety Report 24805682 (Version 1)
Quarter: 2025Q1

REPORT INFORMATION
  Report Type: Spontaneous
  Country: CN (occurrence: CN)
  Receive Date: 20250103
  Receipt Date: 20250103
  Transmission Date: 20250409
  Serious: Yes (Hospitalization)
  Sender: ELI LILLY AND COMPANY
  Company Number: CN-ELI_LILLY_AND_COMPANY-CN202412018682

PATIENT
  Age: 45 Year
  Sex: Female
  Weight: 57 kg

DRUGS (4)
  1. RAMUCIRUMAB [Suspect]
     Active Substance: RAMUCIRUMAB
     Indication: Gastric cancer
     Dosage: 430 MG, DAILY
     Route: 041
     Dates: start: 20241220, end: 20241220
  2. ELOXATIN [Suspect]
     Active Substance: OXALIPLATIN
     Indication: Gastric cancer
     Dosage: 120 MG, DAILY
     Route: 041
     Dates: start: 20241220, end: 20241220
  3. SODIUM CHLORIDE [Concomitant]
     Active Substance: SODIUM CHLORIDE
     Indication: Gastric cancer
     Dosage: 250 ML, DAILY
     Route: 041
     Dates: start: 20241220, end: 20241220
  4. DEXTROSE [Concomitant]
     Active Substance: DEXTROSE MONOHYDRATE
     Indication: Gastric cancer
     Dosage: 200 ML, DAILY
     Route: 041
     Dates: start: 20241220, end: 20241220

REACTIONS (1)
  - Pyrexia [Recovered/Resolved]

NARRATIVE: CASE EVENT DATE: 20241220
